FAERS Safety Report 8155058-3 (Version None)
Quarter: 2012Q1

REPORT INFORMATION
  Report Type: 
  Country: None (occurrence: None)
  Receive Date: 20120221
  Receipt Date: 20120217
  Transmission Date: 20120608
  Serious: Yes (Other)
  Sender: FDA-Public Use
  Company Number: US-PFIZER INC-2012043721

PATIENT
  Sex: Male
  Weight: 86.168 kg

DRUGS (3)
  1. NEURONTIN [Suspect]
     Indication: DIABETIC NEUROPATHY
     Dosage: 300 MG, 3X/DAY
     Dates: start: 20111001
  2. NEURONTIN [Suspect]
     Dosage: 300 MG, 2X/DAY
  3. INSULIN [Concomitant]
     Indication: DIABETES MELLITUS
     Dosage: UNK, AS NEEDED

REACTIONS (2)
  - DIABETIC NEUROPATHY [None]
  - DRUG INEFFECTIVE [None]
